FAERS Safety Report 18087214 (Version 4)
Quarter: 2020Q3

REPORT INFORMATION
  Report Type: Spontaneous
  Country: US (occurrence: US)
  Receive Date: 20200729
  Receipt Date: 20200917
  Transmission Date: 20201103
  Serious: Yes (Hospitalization)
  Sender: FDA-Public Use
  Company Number: US-PFIZER INC-2020286092

PATIENT
  Age: 67 Year
  Sex: Female
  Weight: 77.11 kg

DRUGS (2)
  1. EUCRISA [Suspect]
     Active Substance: CRISABOROLE
     Indication: SKIN DISORDER
     Dosage: UNK
  2. EUCRISA [Suspect]
     Active Substance: CRISABOROLE
     Indication: PSORIASIS
     Dosage: UNK, AS NEEDED (2%, THIN LAYER APPLIED TO SKIN TWICE A DAY AS NEEDED )
     Route: 061
     Dates: start: 2016

REACTIONS (9)
  - Off label use [Unknown]
  - Exostosis [Unknown]
  - Hypertension [Unknown]
  - Musculoskeletal disorder [Unknown]
  - Neuralgia [Not Recovered/Not Resolved]
  - Blood cholesterol increased [Unknown]
  - Intervertebral disc disorder [Unknown]
  - Product use in unapproved indication [Unknown]
  - Condition aggravated [Unknown]
